FAERS Safety Report 19729774 (Version 1)
Quarter: 2021Q3

REPORT INFORMATION
  Report Type: Spontaneous
  Country: US (occurrence: US)
  Receive Date: 20210820
  Receipt Date: 20210820
  Transmission Date: 20211014
  Serious: Yes (Other)
  Sender: FDA-Public Use
  Company Number: US-ROCHE-2880420

PATIENT
  Age: 64 Year
  Sex: Female
  Weight: 60.84 kg

DRUGS (2)
  1. TECENTRIQ [Suspect]
     Active Substance: ATEZOLIZUMAB
     Indication: HEPATIC CANCER
     Dosage: ON 05/MAR/2021, RESTARTED
     Route: 041
     Dates: start: 20210113
  2. AVASTIN [Suspect]
     Active Substance: BEVACIZUMAB
     Indication: HEPATIC CANCER
     Dosage: NO
     Route: 065

REACTIONS (1)
  - Palmar-plantar erythrodysaesthesia syndrome [Unknown]
